FAERS Safety Report 11658778 (Version 2)
Quarter: 2015Q4

REPORT INFORMATION
  Report Type: Spontaneous
  Country: US (occurrence: US)
  Receive Date: 20151026
  Receipt Date: 20151028
  Transmission Date: 20160304
  Serious: Yes (Other)
  Sender: FDA-Public Use
  Company Number: US-AMGEN-USASP2015111328

PATIENT
  Age: 78 Year
  Sex: Male

DRUGS (1)
  1. NEULASTA [Suspect]
     Active Substance: PEGFILGRASTIM
     Indication: PRODUCT USED FOR UNKNOWN INDICATION
     Dosage: UNK UNK, UNK
     Route: 065

REACTIONS (8)
  - Hepatic cancer [Unknown]
  - Pneumonia [Unknown]
  - Nasopharyngitis [Unknown]
  - Arthralgia [Unknown]
  - Discomfort [Unknown]
  - Chest X-ray abnormal [Recovered/Resolved]
  - Mobility decreased [Unknown]
  - Pyrexia [Unknown]

NARRATIVE: CASE EVENT DATE: 20151001
